FAERS Safety Report 5566743-1 (Version None)
Quarter: 2007Q4

REPORT INFORMATION
  Report Type: 
  Country: None (occurrence: None)
  Receive Date: 20071219
  Receipt Date: 20071206
  Transmission Date: 20080405
  Serious: Yes (Other)
  Sender: FDA-Public Use
  Company Number: DE-ELI_LILLY_AND_COMPANY-DE200712002046

PATIENT
  Age: 60 Year
  Sex: Female

DRUGS (4)
  1. CYMBALTA [Suspect]
     Indication: DEPRESSION
     Dosage: 30 MG, EACH EVENING
     Route: 048
     Dates: start: 20071115, end: 20071122
  2. CYMBALTA [Suspect]
     Dosage: 60 MG, EACH EVENING
     Route: 048
     Dates: start: 20071123
  3. AMITRIPTLINE HCL [Concomitant]
     Dosage: 25 MG, DAILY (1/D)
     Route: 065
     Dates: end: 20071101
  4. AMITRIPTLINE HCL [Concomitant]
     Dosage: 50 MG, DAILY (1/D)
     Route: 065

REACTIONS (3)
  - FEAR [None]
  - INSOMNIA [None]
  - SUICIDAL IDEATION [None]
